FAERS Safety Report 8798822 (Version 12)
Quarter: 2016Q2

REPORT INFORMATION
  Report Type: Spontaneous
  Country: US (occurrence: US)
  Receive Date: 20120920
  Receipt Date: 20160620
  Transmission Date: 20160815
  Serious: Yes (Death, Life-Threatening, Hospitalization, Other)
  Sender: FDA-Public Use
  Company Number: US-GLAXOSMITHKLINE-A0990806A

PATIENT
  Age: 69 Year
  Sex: Female
  Weight: 65.5 kg

DRUGS (27)
  1. ADCIRCA [Concomitant]
     Active Substance: TADALAFIL
     Route: 048
  2. TRACLEER [Concomitant]
     Active Substance: BOSENTAN
  3. KENALOG [Concomitant]
     Active Substance: TRIAMCINOLONE ACETONIDE
  4. FLOLAN [Suspect]
     Active Substance: EPOPROSTENOL SODIUM
     Indication: POLYMYOSITIS
     Dosage: UNK
     Dates: start: 20100222
  5. FLOLAN [Suspect]
     Active Substance: EPOPROSTENOL SODIUM
     Indication: PULMONARY HYPERTENSION
     Dosage: UNK
     Dates: start: 20100222
  6. IMURAN [Concomitant]
     Active Substance: AZATHIOPRINE
  7. FLOLAN [Suspect]
     Active Substance: EPOPROSTENOL SODIUM
     Dosage: 28 NG/KG/MIN
     Route: 042
  8. CELLCEPT [Suspect]
     Active Substance: MYCOPHENOLATE MOFETIL\MYCOPHENOLATE MOFETIL HYDROCHLORIDE
     Indication: ARTHRALGIA
     Dosage: 500 MG TABLETS500 MG DAILY X 3 DAYS, THEN 500 MG TWICE DAILY X 2 WEEKS, THEN 1000 MG TWICE DAILY
     Route: 048
  9. PLAQUENIL [Suspect]
     Active Substance: HYDROXYCHLOROQUINE SULFATE
     Indication: ARTHRALGIA
     Dosage: 200 MG TABLET
     Route: 048
  10. DELTASONE [Concomitant]
     Active Substance: PREDNISONE
  11. BABY ASPIRIN [Concomitant]
     Active Substance: ASPIRIN
  12. FLOLAN [Suspect]
     Active Substance: EPOPROSTENOL SODIUM
     Dosage: 28 NG/KG/MIN CONTINUOUS
     Route: 042
     Dates: start: 20100222
  13. KLOR-CON [Concomitant]
     Active Substance: POTASSIUM CHLORIDE
  14. VELETRI [Concomitant]
     Active Substance: EPOPROSTENOL
  15. FLOLAN [Suspect]
     Active Substance: EPOPROSTENOL SODIUM
     Dosage: UNK
     Dates: start: 20100222
  16. PLAQUENIL [Suspect]
     Active Substance: HYDROXYCHLOROQUINE SULFATE
     Indication: CHORIORETINOPATHY
  17. FLONASE [Concomitant]
     Active Substance: FLUTICASONE PROPIONATE
  18. FLOLAN [Suspect]
     Active Substance: EPOPROSTENOL SODIUM
     Indication: PULMONARY HYPERTENSION
     Dosage: UNK
     Dates: start: 20100222
  19. OCUVITE PRESERVISION [Concomitant]
  20. ULTRAM [Concomitant]
     Active Substance: TRAMADOL HYDROCHLORIDE
  21. PLAQUENIL [Suspect]
     Active Substance: HYDROXYCHLOROQUINE SULFATE
     Indication: PULMONARY HYPERTENSION
  22. PLAQUENIL [Suspect]
     Active Substance: HYDROXYCHLOROQUINE SULFATE
     Indication: CLOSTRIDIUM DIFFICILE COLITIS
  23. LASIX [Concomitant]
     Active Substance: FUROSEMIDE
     Route: 048
  24. FLOLAN [Suspect]
     Active Substance: EPOPROSTENOL SODIUM
     Indication: COR PULMONALE CHRONIC
     Dosage: 28 NG/KG/MIN CONTINUOUSLY WITH A CONCENTRATION OF 45,000 NG/ML.28 NG/KG/MIN CONTINUOUSLY WITH A[...]
     Route: 042
     Dates: start: 20100222
  25. PLAQUENIL [Suspect]
     Active Substance: HYDROXYCHLOROQUINE SULFATE
     Indication: WEIGHT DECREASED
  26. CLARITIN [Concomitant]
     Active Substance: LORATADINE
     Route: 048
  27. AMBIEN [Concomitant]
     Active Substance: ZOLPIDEM TARTRATE

REACTIONS (22)
  - Catheter site discharge [Recovered/Resolved]
  - Complication associated with device [Recovered/Resolved]
  - Ejection fraction decreased [Recovering/Resolving]
  - Catheterisation cardiac [Unknown]
  - Herpes zoster [Unknown]
  - Syncope [Unknown]
  - Flushing [Recovering/Resolving]
  - Upper respiratory tract infection [Recovering/Resolving]
  - Ear infection [Unknown]
  - Death [Fatal]
  - Right ventricular heave [Recovering/Resolving]
  - Emergency care [Unknown]
  - Hypoaesthesia [Recovered/Resolved]
  - Oedema peripheral [Recovering/Resolving]
  - Left ventricular dysfunction [Recovering/Resolving]
  - Asthenia [Recovered/Resolved]
  - Hypertension [Recovering/Resolving]
  - Hospitalisation [Recovering/Resolving]
  - Endotracheal intubation [Unknown]
  - Diarrhoea [Recovering/Resolving]
  - Dizziness [Unknown]
  - Tachycardia [Unknown]

NARRATIVE: CASE EVENT DATE: 20120820
